FAERS Safety Report 4357958-9 (Version None)
Quarter: 2004Q2

REPORT INFORMATION
  Report Type: 
  Country: None (occurrence: None)
  Receive Date: 20040510
  Receipt Date: 20040422
  Transmission Date: 20050107
  Serious: Yes (Life-Threatening)
  Sender: FDA-Public Use
  Company Number: A06200400129

PATIENT
  Age: 49 Year
  Sex: Female

DRUGS (2)
  1. DANAZOL [Suspect]
     Indication: METRORRHAGIA
     Dosage: 200 MG OD
     Route: 048
     Dates: start: 19940110, end: 20040330
  2. SIVASTIN (SIMVASTATIN) 40 MG [Suspect]
     Indication: HYPERCHOLESTEROLAEMIA
     Dosage: 40 MG OD
     Route: 048
     Dates: start: 20040304, end: 20040330

REACTIONS (3)
  - DRUG INTERACTION [None]
  - HYPERCHOLESTEROLAEMIA [None]
  - RHABDOMYOLYSIS [None]
